FAERS Safety Report 6621592-8 (Version None)
Quarter: 2010Q1

REPORT INFORMATION
  Report Type: 
  Country: None (occurrence: None)
  Receive Date: 20100309
  Receipt Date: 20100226
  Transmission Date: 20100710
  Serious: Yes (Other)
  Sender: FDA-Public Use
  Company Number: US-AMGEN-QUU393144

PATIENT
  Sex: Male
  Weight: 72.2 kg

DRUGS (6)
  1. NEUPOGEN [Suspect]
     Indication: CHEMOTHERAPY
     Route: 058
     Dates: start: 20100203, end: 20100205
  2. PRIMAXIN [Suspect]
     Dates: start: 20100203, end: 20100204
  3. LEUKINE [Concomitant]
     Dates: start: 20100201
  4. BACTRIM [Concomitant]
  5. CLADRIBINE [Concomitant]
     Dates: start: 20100125, end: 20100130
  6. FORTAZ [Concomitant]

REACTIONS (3)
  - CONJUNCTIVITIS [None]
  - PYREXIA [None]
  - RASH PRURITIC [None]
